FAERS Safety Report 6476054-8 (Version None)
Quarter: 2009Q4

REPORT INFORMATION
  Report Type: 
  Country: None (occurrence: None)
  Receive Date: 20091204
  Receipt Date: 20091125
  Transmission Date: 20100525
  Serious: Yes (Other)
  Sender: FDA-Public Use
  Company Number: US-JNJCH-2009016620

PATIENT
  Age: 67 Year
  Sex: Female
  Weight: 69.4 kg

DRUGS (3)
  1. BENGAY ULTRA STRENGTH PATCH [Suspect]
     Indication: BACK DISORDER
     Dosage: TEXT:ONE PATCH ONCE
     Route: 061
  2. ANTIHYPERTENSIVES [Concomitant]
     Indication: BLOOD PRESSURE
     Dosage: TEXT:UNSPECIFIED
     Route: 065
  3. DRUG, UNSPECIFIED [Concomitant]
     Indication: THYROID DISORDER
     Dosage: TEXT:UNSPECIFIED
     Route: 065

REACTIONS (10)
  - APPLICATION SITE INFECTION [None]
  - APPLICATION SITE PAIN [None]
  - APPLICATION SITE PRURITUS [None]
  - APPLICATION SITE RASH [None]
  - BACK PAIN [None]
  - DISCOMFORT [None]
  - INAPPROPRIATE SCHEDULE OF DRUG ADMINISTRATION [None]
  - OPEN WOUND [None]
  - PRODUCT QUALITY ISSUE [None]
  - SCAR [None]
